FAERS Safety Report 23524248 (Version 2)
Quarter: 2024Q1

REPORT INFORMATION
  Report Type: Spontaneous
  Country: HR (occurrence: HR)
  Receive Date: 20240214
  Receipt Date: 20240221
  Transmission Date: 20240410
  Serious: Yes (Other)
  Sender: FDA-Public Use
  Company Number: HR-002147023-NVSC2024HR028461

PATIENT
  Age: 55 Year
  Sex: Female

DRUGS (5)
  1. AIMOVIG [Suspect]
     Active Substance: ERENUMAB-AOOE
     Indication: Migraine
     Dosage: 140 MILLIGRAM
     Route: 058
     Dates: start: 202104, end: 202210
  2. Nalgesin [Concomitant]
     Indication: Tension
     Dosage: UNK
     Route: 065
  3. Nalgesin [Concomitant]
     Indication: Migraine
  4. DIAZEPAM [Concomitant]
     Active Substance: DIAZEPAM
     Indication: Tension
     Dosage: UNK
     Route: 065
  5. DIAZEPAM [Concomitant]
     Active Substance: DIAZEPAM
     Indication: Migraine

REACTIONS (7)
  - Meningioma [Unknown]
  - Tension headache [Recovering/Resolving]
  - Insomnia [Unknown]
  - Headache [Recovering/Resolving]
  - Anxiety [Unknown]
  - Abnormal sensation in eye [Recovering/Resolving]
  - Drug ineffective [Unknown]

NARRATIVE: CASE EVENT DATE: 20221001
